FAERS Safety Report 5431198-4 (Version None)
Quarter: 2007Q3

REPORT INFORMATION
  Report Type: 
  Country: None (occurrence: None)
  Receive Date: 20070830
  Receipt Date: 20070327
  Transmission Date: 20080115
  Serious: No
  Sender: FDA-Public Use
  Company Number: A0644822A

PATIENT
  Age: 60 Year
  Sex: Female

DRUGS (7)
  1. WELLBUTRIN XL [Suspect]
     Indication: ANXIETY
     Dosage: 300MG PER DAY
     Route: 048
     Dates: start: 20070101
  2. PAXIL [Suspect]
     Indication: DRUG USE FOR UNKNOWN INDICATION
     Route: 048
  3. PREMARIN [Concomitant]
  4. BENICAR [Concomitant]
  5. PREVACID [Concomitant]
  6. ALLEGRA [Concomitant]
  7. LUNESTA [Concomitant]

REACTIONS (2)
  - WAIST CIRCUMFERENCE INCREASED [None]
  - WEIGHT INCREASED [None]
